FAERS Safety Report 21695336 (Version 1)
Quarter: 2022Q4

REPORT INFORMATION
  Report Type: Spontaneous
  Country: US (occurrence: US)
  Receive Date: 20221207
  Receipt Date: 20221207
  Transmission Date: 20230112
  Serious: Yes (Other)
  Sender: FDA-Public Use
  Company Number: US-BAYER-2022P025801

PATIENT
  Age: 40 Year
  Sex: Female

DRUGS (1)
  1. JIVI [Suspect]
     Active Substance: DAMOCTOCOG ALFA PEGOL
     Indication: Factor VIII deficiency
     Dosage: 2600 UNITS (2340-2860) SLOW IV PUSH TWO TIMES A WEEK.
     Route: 042
     Dates: start: 202203

REACTIONS (5)
  - Haemorrhage [None]
  - Road traffic accident [None]
  - Contusion [None]
  - Contusion [None]
  - Contusion [None]
